FAERS Safety Report 4517858-8 (Version None)
Quarter: 2004Q4

REPORT INFORMATION
  Report Type: 
  Country: None (occurrence: None)
  Receive Date: 20041203
  Receipt Date: 20040405
  Transmission Date: 20050328
  Serious: No
  Sender: FDA-Public Use
  Company Number: US-BRISTOL-MYERS SQUIBB COMPANY-12551347

PATIENT
  Age: 39 Year
  Sex: Female

DRUGS (1)
  1. PROLIXIN [Suspect]

REACTIONS (1)
  - TARDIVE DYSKINESIA [None]
